FAERS Safety Report 21105034 (Version 1)
Quarter: 2022Q3

REPORT INFORMATION
  Report Type: Report from Study
  Country: US (occurrence: US)
  Receive Date: 20220720
  Receipt Date: 20220720
  Transmission Date: 20221027
  Serious: No
  Sender: FDA-Public Use
  Company Number: US-BIOVITRUM-2022US05096

PATIENT
  Sex: Male

DRUGS (1)
  1. KINERET [Suspect]
     Active Substance: ANAKINRA
     Indication: Product used for unknown indication
     Dates: start: 20220409

REACTIONS (4)
  - Loss of personal independence in daily activities [Unknown]
  - Injection site erythema [Unknown]
  - Product dose omission issue [Unknown]
  - Drug ineffective [Unknown]
